FAERS Safety Report 9399515 (Version 1)
Quarter: 2013Q3

REPORT INFORMATION
  Report Type: Spontaneous
  Country: US (occurrence: None)
  Receive Date: 20130710
  Receipt Date: 20130710
  Transmission Date: 20140515
  Serious: Yes (Hospitalization)
  Sender: FDA-Public Use
  Company Number: 2013P1010742

PATIENT
  Age: 20 Year
  Sex: Female

DRUGS (4)
  1. ATENOLOL [Suspect]
  2. DOXAZOSIN [Concomitant]
  3. AMLODIPINE [Concomitant]
  4. VALSARTAN [Concomitant]

REACTIONS (10)
  - Abdominal pain [None]
  - Asthenia [None]
  - Haemodynamic instability [None]
  - Blood pressure decreased [None]
  - Sepsis [None]
  - Shock [None]
  - Renal failure [None]
  - Intestinal ischaemia [None]
  - Hypotension [None]
  - Toxicity to various agents [None]
